FAERS Safety Report 15083442 (Version 1)
Quarter: 2018Q2

REPORT INFORMATION
  Report Type: Spontaneous
  Country: CN (occurrence: CN)
  Receive Date: 20180628
  Receipt Date: 20180628
  Transmission Date: 20180711
  Serious: Yes (Other)
  Sender: FDA-Public Use
  Company Number: CN-IMPAX LABORATORIES, INC-2018-IPXL-02245

PATIENT
  Sex: Female

DRUGS (1)
  1. ALBENZA [Suspect]
     Active Substance: ALBENDAZOLE
     Indication: HELMINTHIC INFECTION
     Dosage: 2 DF, (DOSAGE FORM) AT EVERY HALF YEAR
     Route: 048
     Dates: start: 20180601

REACTIONS (3)
  - Exposure during pregnancy [Unknown]
  - Abortion threatened [Unknown]
  - Contraindicated product administered [Unknown]
